FAERS Safety Report 10268587 (Version 1)
Quarter: 2014Q2

REPORT INFORMATION
  Report Type: Spontaneous
  Country: FR (occurrence: FR)
  Receive Date: 20140630
  Receipt Date: 20140630
  Transmission Date: 20141212
  Serious: Yes (Hospitalization)
  Sender: FDA-Public Use
  Company Number: FR-PFIZER INC-2014178355

PATIENT
  Age: 90 Year
  Sex: Male

DRUGS (1)
  1. CORDARONE [Suspect]
     Dosage: 3 DF, DAILY (2 TABLETS AND 1 TABLET)
     Route: 048
     Dates: start: 20140529, end: 20140602

REACTIONS (3)
  - Hypovolaemic shock [Recovered/Resolved]
  - Hypotension [Recovered/Resolved]
  - Bradycardia [Recovered/Resolved]
